FAERS Safety Report 24535830 (Version 1)
Quarter: 2024Q4

REPORT INFORMATION
  Report Type: Spontaneous
  Country: US (occurrence: US)
  Receive Date: 20241022
  Receipt Date: 20241022
  Transmission Date: 20250114
  Serious: Yes (Death, Other)
  Sender: GLAND PHARMA LTD
  Company Number: US-GLANDPHARMA-US-2024GLNLIT00884

PATIENT
  Age: 86 Year
  Sex: Male

DRUGS (2)
  1. METOPROLOL TARTRATE [Suspect]
     Active Substance: METOPROLOL TARTRATE
     Indication: Cardiac failure
     Route: 065
  2. OXYGEN [Concomitant]
     Active Substance: OXYGEN
     Indication: Chronic obstructive pulmonary disease
     Route: 065

REACTIONS (6)
  - BRASH syndrome [Fatal]
  - Atrioventricular block first degree [Fatal]
  - Encephalopathy [Fatal]
  - Respiratory failure [Fatal]
  - Aspiration [Fatal]
  - Product use in unapproved indication [Unknown]
